FAERS Safety Report 8563520-4 (Version None)
Quarter: 2012Q3

REPORT INFORMATION
  Report Type: 
  Country: None (occurrence: None)
  Receive Date: 20120802
  Receipt Date: 20120723
  Transmission Date: 20120928
  Serious: Yes (Hospitalization, Other)
  Sender: FDA-Public Use
  Company Number: US-MSD-1208USA001029

PATIENT

DRUGS (11)
  1. RAMIPRIL [Suspect]
     Route: 048
  2. AMLODIPINE [Suspect]
     Route: 048
  3. TICAGRELOR [Suspect]
     Dosage: 60 MG, BID
     Route: 048
  4. DIPYRIDAMOLE [Concomitant]
  5. METFORMIN HYDROCHLORIDE [Suspect]
     Route: 048
  6. ZOCOR [Suspect]
     Route: 048
  7. PANTOPRAZOLE [Suspect]
     Route: 048
  8. LEVOTHYROXINE SODIUM [Suspect]
     Route: 048
  9. ASPIRIN [Suspect]
     Dosage: 100 MG, QD
     Route: 048
  10. CLOPIDOGREL [Concomitant]
  11. BISOPROLOL FUMARATE [Suspect]
     Route: 048

REACTIONS (1)
  - ANGIOEDEMA [None]
